FAERS Safety Report 5794140-2 (Version None)
Quarter: 2008Q2

REPORT INFORMATION
  Report Type: 
  Country: None (occurrence: None)
  Receive Date: 20080627
  Receipt Date: 20080618
  Transmission Date: 20081010
  Serious: Yes (Hospitalization, Other)
  Sender: FDA-Public Use
  Company Number: US-MERCK-0706USA00964

PATIENT
  Age: 74 Year
  Sex: Female

DRUGS (3)
  1. FOSAMAX [Suspect]
     Indication: OSTEOPOROSIS
     Route: 048
     Dates: start: 19990101
  2. FOSAMAX [Suspect]
     Route: 048
     Dates: end: 20060101
  3. PREMARIN [Concomitant]
     Route: 065
     Dates: start: 19900101

REACTIONS (18)
  - ANXIETY [None]
  - BLOOD CHOLESTEROL INCREASED [None]
  - CELLULITIS [None]
  - DENTAL CARIES [None]
  - DEPRESSION [None]
  - DEVICE RELATED INFECTION [None]
  - FALL [None]
  - GINGIVAL INFECTION [None]
  - IMPAIRED HEALING [None]
  - IMPLANT SITE REACTION [None]
  - MASTICATION DISORDER [None]
  - NECK INJURY [None]
  - ORAL INFECTION [None]
  - OSTEOMYELITIS [None]
  - OSTEONECROSIS [None]
  - SUBDURAL HAEMATOMA [None]
  - TOOTH LOSS [None]
  - UTERINE DISORDER [None]
